FAERS Safety Report 5772532-5 (Version None)
Quarter: 2008Q2

REPORT INFORMATION
  Report Type: 
  Country: None (occurrence: None)
  Receive Date: 20080613
  Receipt Date: 20080605
  Transmission Date: 20081010
  Serious: Yes (Hospitalization)
  Sender: FDA-Public Use
  Company Number: US-AMGEN-QUU285277

PATIENT
  Sex: Female

DRUGS (3)
  1. ENBREL [Suspect]
     Indication: RHEUMATOID ARTHRITIS
     Route: 058
  2. SYNTHROID [Concomitant]
  3. FOSAMAX [Concomitant]

REACTIONS (7)
  - CATARACT [None]
  - ENAMEL ANOMALY [None]
  - GINGIVAL RECESSION [None]
  - HIP ARTHROPLASTY [None]
  - OSTEOPOROSIS [None]
  - THYROID FUNCTION TEST ABNORMAL [None]
  - TOOTH FRACTURE [None]
